FAERS Safety Report 4279962-1 (Version None)
Quarter: 2004Q1

REPORT INFORMATION
  Report Type: 
  Country: None (occurrence: None)
  Receive Date: 20040126
  Receipt Date: 20040109
  Transmission Date: 20041129
  Serious: Yes (Hospitalization)
  Sender: FDA-Public Use
  Company Number: S03-SWI-04412-01

PATIENT
  Age: 73 Year
  Sex: Female

DRUGS (16)
  1. CIPRALEX (ESCITALOPRAM) [Suspect]
     Dosage: 5 MG QD PO
     Route: 048
     Dates: start: 20030801, end: 20030820
  2. CIPRALEX (ESCITALOPRAM) [Suspect]
     Dosage: 10 MG QD PO
     Route: 048
     Dates: start: 20030714, end: 20030731
  3. VIOXX [Suspect]
     Dosage: 12.5 MG QD PO
     Route: 048
     Dates: start: 20030802, end: 20030802
  4. VIOXX [Suspect]
     Dosage: 12.5 MG QD PO
     Route: 048
     Dates: start: 20030805, end: 20030805
  5. VIOXX [Suspect]
     Dosage: 12.5 MG QD PO
     Route: 048
     Dates: start: 20030808, end: 20030808
  6. VIOXX [Suspect]
     Dosage: 12.5 MG QD PO
     Route: 048
     Dates: start: 20030811, end: 20030811
  7. VIOXX [Suspect]
     Dosage: 25 MG QD PO
     Route: 048
     Dates: start: 20030726, end: 20030726
  8. VIOXX [Suspect]
     Dosage: 12.5 MG QD PO
     Route: 048
     Dates: start: 20030703, end: 20030703
  9. VIOXX [Suspect]
     Dosage: 12.5 MG QD PO
     Route: 048
     Dates: start: 20030713, end: 20030713
  10. VIOXX [Suspect]
     Dosage: 12.5 MG QD PO
     Route: 048
     Dates: start: 20030715, end: 20030715
  11. VIOXX [Suspect]
     Dosage: 12.5 MG QD PO
     Route: 048
     Dates: start: 20030814, end: 20030814
  12. ZYPREXA [Concomitant]
  13. LORAZEPAM [Concomitant]
  14. DUPHALAC [Concomitant]
  15. PARAGOL [Concomitant]
  16. FIG SYRUP [Concomitant]

REACTIONS (8)
  - AKATHISIA [None]
  - EXANTHEM [None]
  - GAMMA-GLUTAMYLTRANSFERASE INCREASED [None]
  - MONOCYTE COUNT INCREASED [None]
  - NEUTROPHIL COUNT INCREASED [None]
  - PARKINSONISM [None]
  - RASH [None]
  - SLEEP DISORDER [None]
